FAERS Safety Report 16805723 (Version 1)
Quarter: 2019Q3

REPORT INFORMATION
  Report Type: Spontaneous
  Country: IT (occurrence: IT)
  Receive Date: 20190913
  Receipt Date: 20190913
  Transmission Date: 20191005
  Serious: Yes (Other)
  Sender: FDA-Public Use
  Company Number: IT-SA-2019SA251537

PATIENT
  Age: 75 Year
  Sex: Male

DRUGS (9)
  1. ABASAGLAR [Concomitant]
     Active Substance: INSULIN GLARGINE
     Route: 065
  2. INSULIN LISPRO [Suspect]
     Active Substance: INSULIN LISPRO
     Indication: TYPE 2 DIABETES MELLITUS
     Route: 058
     Dates: start: 20190702, end: 20190702
  3. PANTOPRAZOLE [Concomitant]
     Active Substance: PANTOPRAZOLE
     Route: 065
  4. UROREC [Concomitant]
     Active Substance: SILODOSIN
     Route: 065
  5. NOBISTAR [Concomitant]
     Active Substance: NEBIVOLOL HYDROCHLORIDE
     Route: 065
  6. METFORMIN [Concomitant]
     Active Substance: METFORMIN HYDROCHLORIDE
     Route: 048
  7. ATORVASTATIN [Concomitant]
     Active Substance: ATORVASTATIN
     Route: 065
  8. VALSARTAN. [Concomitant]
     Active Substance: VALSARTAN
     Route: 065
  9. FORXIGA [Concomitant]
     Active Substance: DAPAGLIFLOZIN
     Route: 065

REACTIONS (3)
  - Hyperhidrosis [Recovered/Resolved]
  - Product administration error [Unknown]
  - Nervousness [Recovered/Resolved]

NARRATIVE: CASE EVENT DATE: 20190702
